FAERS Safety Report 25825988 (Version 1)
Quarter: 2025Q3

REPORT INFORMATION
  Report Type: Spontaneous
  Country: CA (occurrence: CA)
  Receive Date: 20250919
  Receipt Date: 20250919
  Transmission Date: 20251021
  Serious: Yes (Other)
  Sender: TEVA
  Company Number: CA-TEVA-VS-3373348

PATIENT
  Sex: Female

DRUGS (2)
  1. PREDNISONE [Suspect]
     Active Substance: PREDNISONE
     Indication: C3 glomerulopathy
     Dosage: DOSE FORM:NOT SPECIFIED
     Route: 065
  2. MYFORTIC [Suspect]
     Active Substance: MYCOPHENOLATE SODIUM
     Indication: C3 glomerulopathy
     Dosage: DOSE FORM:TABLET (ENTERIC-COATED)
     Route: 065

REACTIONS (4)
  - Myelosuppression [Unknown]
  - Glomerular filtration rate decreased [Unknown]
  - Urine protein/creatinine ratio increased [Unknown]
  - Drug ineffective for unapproved indication [Unknown]
